FAERS Safety Report 8272581-1 (Version None)
Quarter: 2012Q2

REPORT INFORMATION
  Report Type: 
  Country: None (occurrence: None)
  Receive Date: 20120410
  Receipt Date: 20120406
  Transmission Date: 20120825
  Serious: Yes (Hospitalization, Disabling, Other)
  Sender: FDA-Public Use
  Company Number: US-MERCK-1007USA01076

PATIENT
  Age: 83 Year
  Sex: Female

DRUGS (3)
  1. FOSAMAX [Suspect]
     Indication: OSTEOPOROSIS
     Route: 048
     Dates: start: 20040101, end: 20071001
  2. FOSAMAX [Suspect]
     Indication: OSTEOPENIA
     Route: 048
     Dates: start: 20040101, end: 20071001
  3. PAXIL [Concomitant]
     Route: 065

REACTIONS (6)
  - ABASIA [None]
  - FEMUR FRACTURE [None]
  - LOWER LIMB FRACTURE [None]
  - PAIN [None]
  - FALL [None]
  - PAIN IN EXTREMITY [None]
